FAERS Safety Report 20961054 (Version 3)
Quarter: 2022Q2

REPORT INFORMATION
  Report Type: Report from Study
  Country: IL (occurrence: IL)
  Receive Date: 20220615
  Receipt Date: 20220624
  Transmission Date: 20220721
  Serious: Yes (Hospitalization, Other)
  Sender: FDA-Public Use
  Company Number: IL-UROGEN PHARMA LTD.-2022-UGN-000054

PATIENT

DRUGS (2)
  1. JELMYTO [Suspect]
     Active Substance: MITOMYCIN
     Indication: Product used for unknown indication
     Dosage: UNK (INSTILLATION)
     Dates: start: 20220511, end: 20220511
  2. JELMYTO [Suspect]
     Active Substance: MITOMYCIN
     Dosage: UNK (INSTILLATION)
     Dates: start: 20220518, end: 20220518

REACTIONS (4)
  - Pneumonia [Unknown]
  - Acute kidney injury [Unknown]
  - Haematuria [Recovered/Resolved]
  - Flank pain [Recovered/Resolved]

NARRATIVE: CASE EVENT DATE: 20220512
